FAERS Safety Report 5378214-6 (Version None)
Quarter: 2007Q3

REPORT INFORMATION
  Report Type: 
  Country: None (occurrence: None)
  Receive Date: 20070705
  Receipt Date: 20070625
  Transmission Date: 20080115
  Serious: Yes (Hospitalization)
  Sender: FDA-Public Use
  Company Number: US-JNJFOC-20070301866

PATIENT
  Sex: Female
  Weight: 41.73 kg

DRUGS (2)
  1. CONCERTA [Suspect]
     Route: 048
  2. CONCERTA [Suspect]
     Indication: ATTENTION DEFICIT/HYPERACTIVITY DISORDER
     Route: 048

REACTIONS (4)
  - ABDOMINAL PAIN [None]
  - APPENDICECTOMY [None]
  - LYMPHADENITIS [None]
  - PHARYNGITIS STREPTOCOCCAL [None]
